FAERS Safety Report 8933295 (Version 1)
Quarter: 2012Q4

REPORT INFORMATION
  Report Type: 
  Country: US (occurrence: US)
  Receive Date: 20121129
  Receipt Date: 20121129
  Transmission Date: 20130627
  Serious: Yes (Hospitalization)
  Sender: FDA-Public Use
  Company Number: US-MERCK-1205USA03172

PATIENT
  Age: 64 Year
  Sex: Female
  Weight: 84.82 kg

DRUGS (19)
  1. ZOLINZA [Suspect]
     Indication: LUNG ADENOCARCINOMA
     Dosage: 100 mg, qd
     Route: 048
     Dates: start: 20110107, end: 20110225
  2. CISPLATIN [Suspect]
     Indication: LUNG ADENOCARCINOMA
     Dosage: every 21-days X4
     Dates: start: 20110110, end: 20110221
  3. CRESTOR [Concomitant]
  4. CYANOCOBALAMIN [Concomitant]
  5. PEPCID AC [Concomitant]
  6. PEMETREXED DISODIUM [Concomitant]
  7. MK-9278 [Concomitant]
  8. DEXAMETHASONE [Concomitant]
  9. OXYCODONE HYDROCHLORIDE [Concomitant]
  10. BENICAR [Concomitant]
  11. MK-9039 [Concomitant]
  12. PERIOMED [Concomitant]
  13. MK-0869 [Concomitant]
  14. BYSTOLIC [Concomitant]
  15. COMPAZINE [Concomitant]
  16. ONGLYZA [Concomitant]
  17. THERAPEUTIC RADIOPHARMACEUTICAL (UNSPECIFIED) [Concomitant]
  18. CENTRUM SILVER [Concomitant]
  19. TOBRAMYCIN [Concomitant]

REACTIONS (6)
  - Electrolyte imbalance [Unknown]
  - Dehydration [Unknown]
  - Nausea [Unknown]
  - Urinary tract infection [Unknown]
  - Vomiting [Unknown]
  - Hypokalaemia [Unknown]
